FAERS Safety Report 7454940-X (Version None)
Quarter: 2011Q2

REPORT INFORMATION
  Report Type: 
  Country: None (occurrence: None)
  Receive Date: 20110503
  Receipt Date: 20110429
  Transmission Date: 20111010
  Serious: No
  Sender: FDA-Public Use
  Company Number: KR-BRISTOL-MYERS SQUIBB COMPANY-15668585

PATIENT

DRUGS (2)
  1. XELODA [Suspect]
     Indication: GASTROOESOPHAGEAL CANCER
     Dosage: TABLET.ON DAY 1-15.DISCONTINUED ON 06JAN2011
     Route: 048
     Dates: end: 20110106
  2. CISPLATIN [Suspect]
     Indication: GASTROOESOPHAGEAL CANCER
     Dosage: ONDAY 1 OF CYCLE.DISCONTINUED ON 06JAN2011
     Route: 042
     Dates: end: 20101223

REACTIONS (1)
  - GASTROINTESTINAL HAEMORRHAGE [None]
